FAERS Safety Report 9800857 (Version 1)
Quarter: 2014Q1

REPORT INFORMATION
  Report Type: Spontaneous
  Country: FR (occurrence: FR)
  Receive Date: 20140107
  Receipt Date: 20140107
  Transmission Date: 20141002
  Serious: Yes (Hospitalization)
  Sender: FDA-Public Use
  Company Number: FR-EISAI INC-E7389-04604-SPO-FR

PATIENT
  Age: 60 Year
  Sex: Female

DRUGS (1)
  1. HALAVEN [Suspect]
     Indication: BREAST CANCER METASTATIC
     Dosage: 1.95 MG
     Route: 041
     Dates: start: 20131125, end: 20131125

REACTIONS (3)
  - Rectal haemorrhage [Recovered/Resolved]
  - Haemangioma [Not Recovered/Not Resolved]
  - Anaemia [Recovering/Resolving]
